FAERS Safety Report 11241793 (Version 1)
Quarter: 2015Q3

REPORT INFORMATION
  Report Type: Report from Study
  Country: DE (occurrence: DE)
  Receive Date: 20150706
  Receipt Date: 20150706
  Transmission Date: 20151125
  Serious: Yes (Death, Hospitalization)
  Sender: FDA-Public Use
  Company Number: DE-MERCK-1501DEU000059

PATIENT
  Age: 70 Year
  Sex: Male

DRUGS (1)
  1. PEMBROLIZUMAB. [Suspect]
     Active Substance: PEMBROLIZUMAB
     Indication: METASTATIC MALIGNANT MELANOMA
     Dosage: 2 MG/KG, Q3W, REPORTED AS ^4 UNITS (=200MG)^
     Route: 042
     Dates: start: 20141120, end: 20150115

REACTIONS (3)
  - Pancreatitis [Unknown]
  - Malignant neoplasm progression [Fatal]
  - Pancreatitis [Unknown]

NARRATIVE: CASE EVENT DATE: 20141218
